FAERS Safety Report 5736352-X (Version None)
Quarter: 2008Q2

REPORT INFORMATION
  Report Type: 
  Country: None (occurrence: None)
  Receive Date: 20080513
  Receipt Date: 20080505
  Transmission Date: 20081010
  Serious: Yes (Hospitalization, Disabling)
  Sender: FDA-Public Use
  Company Number: US-ELI_LILLY_AND_COMPANY-US200805000747

PATIENT
  Sex: Female
  Weight: 129.25 kg

DRUGS (17)
  1. BYETTA [Suspect]
     Indication: TYPE 2 DIABETES MELLITUS
     Dosage: 5 UG, 2/D
     Route: 058
     Dates: start: 20050101, end: 20050101
  2. BYETTA [Suspect]
     Dosage: 10 UG, 2/D
     Route: 058
     Dates: start: 20050101, end: 20050101
  3. BYETTA [Suspect]
     Dosage: 5 UG, 2/D
     Route: 058
     Dates: start: 20060101, end: 20060101
  4. BYETTA [Suspect]
     Dosage: 10 UG, 2/D
     Route: 058
     Dates: start: 20060101
  5. METFORMIN HCL [Concomitant]
     Indication: DIABETES MELLITUS
     Dosage: 1000 MG, 2/D
     Dates: start: 19970101, end: 20050101
  6. METFORMIN HCL [Concomitant]
     Dosage: 1000 MG, 2/D
     Dates: start: 20060101
  7. ACTOS [Concomitant]
     Indication: DIABETES MELLITUS
     Dosage: 45 MG, DAILY (1/D)
     Dates: start: 20000101, end: 20050101
  8. ACTOS [Concomitant]
     Dosage: 45 MG, DAILY (1/D)
     Dates: start: 20060101
  9. INSULIN HUMALOG MIX [Concomitant]
     Indication: DIABETES MELLITUS
     Dosage: UNK, 2/D
     Dates: end: 20050101
  10. LANTUS [Concomitant]
     Indication: DIABETES MELLITUS
     Dosage: 50 U, 2/D
     Dates: start: 20060101
  11. FUROSEMIDE [Concomitant]
     Indication: FLUID RETENTION
     Dosage: 80 MG, DAILY (1/D)
     Dates: start: 20060101
  12. FUROSEMIDE [Concomitant]
     Dosage: 40 MG, DAILY (1/D)
  13. FUROSEMIDE [Concomitant]
     Dosage: 80 MG, DAILY (1/D)
     Dates: start: 20080401
  14. AVALIDE [Concomitant]
     Indication: BLOOD PRESSURE
     Dosage: UNK, DAILY (1/D)
     Dates: start: 20070101
  15. CARDIZEM [Concomitant]
     Indication: BLOOD PRESSURE
     Dosage: 360 MG, DAILY (1/D)
     Dates: start: 20060101
  16. LEVOTHYROXINE SODIUM [Concomitant]
     Indication: HYPOTHYROIDISM
     Dosage: 200 UG, DAILY (1/D)
     Dates: start: 20030101
  17. ANTIHYPERTENSIVES [Concomitant]
     Dosage: UNK, UNKNOWN

REACTIONS (13)
  - ARTHROPATHY [None]
  - BACK DISORDER [None]
  - BACK PAIN [None]
  - BLOOD GLUCOSE INCREASED [None]
  - CEREBROVASCULAR ACCIDENT [None]
  - DEPRESSION [None]
  - FALL [None]
  - LIMB DISCOMFORT [None]
  - MEMORY IMPAIRMENT [None]
  - MOBILITY DECREASED [None]
  - NEUROPATHY PERIPHERAL [None]
  - SPINAL COLUMN STENOSIS [None]
  - TREMOR [None]
